FAERS Safety Report 10594078 (Version 2)
Quarter: 2014Q4

REPORT INFORMATION
  Report Type: Spontaneous
  Country: AR (occurrence: AR)
  Receive Date: 20141119
  Receipt Date: 20141201
  Transmission Date: 20150529
  Serious: Yes (Hospitalization, Other)
  Sender: FDA-Public Use
  Company Number: PHHY2014AR151144

PATIENT
  Sex: Female

DRUGS (1)
  1. DIOVAN [Suspect]
     Active Substance: VALSARTAN
     Indication: HYPERTENSION
     Dosage: 1 DF (320 UNITS NOT REPORTED), QD
     Route: 048

REACTIONS (3)
  - Large intestine polyp [Not Recovered/Not Resolved]
  - Concomitant disease aggravated [Recovering/Resolving]
  - Arrhythmia [Recovering/Resolving]
